FAERS Safety Report 18602986 (Version 1)
Quarter: 2020Q4

REPORT INFORMATION
  Report Type: Spontaneous
  Country: UA (occurrence: UA)
  Receive Date: 20201210
  Receipt Date: 20201210
  Transmission Date: 20210114
  Serious: Yes (Other)
  Sender: FDA-Public Use
  Company Number: UA-TEVA-2020-UA-1856655

PATIENT
  Age: 28 Year
  Sex: Male

DRUGS (1)
  1. SUMAMED [Suspect]
     Active Substance: AZITHROMYCIN ANHYDROUS
     Dosage: 500 MILLIGRAM DAILY;
     Route: 065

REACTIONS (3)
  - Pathogen resistance [Unknown]
  - Drug ineffective [Unknown]
  - Peritonsillar abscess [Unknown]
